FAERS Safety Report 7423786-0 (Version None)
Quarter: 2011Q1

REPORT INFORMATION
  Report Type: 
  Country: None (occurrence: None)
  Receive Date: 20110331
  Receipt Date: 20110317
  Transmission Date: 20110831
  Serious: Yes (Other)
  Sender: FDA-Public Use
  Company Number: 2011PROUSA00254

PATIENT
  Age: 77 Year
  Sex: Male

DRUGS (3)
  1. PROVENGE [Suspect]
     Indication: PROSTATE CANCER METASTATIC
     Dosage: 250 ML, SINGLE, INTRAVENOUS
     Route: 042
     Dates: start: 20100812, end: 20100812
  2. PROVENGE [Suspect]
     Dosage: 250 ML, SINGLE, INTRAVENOUS
     Route: 042
     Dates: start: 20101216, end: 20101216
  3. PROVENGE [Suspect]
     Dosage: 250 ML, SINGLE, INTRAVENOUS
     Route: 042
     Dates: start: 20100927, end: 20100927

REACTIONS (6)
  - CSF PROTEIN INCREASED [None]
  - ARTHRALGIA [None]
  - MYALGIA [None]
  - FATIGUE [None]
  - BACTERIAL TEST POSITIVE [None]
  - PAIN IN EXTREMITY [None]
